FAERS Safety Report 7320965-8 (Version None)
Quarter: 2011Q1

REPORT INFORMATION
  Report Type: 
  Country: None (occurrence: None)
  Receive Date: 20110228
  Receipt Date: 20110218
  Transmission Date: 20110831
  Serious: Yes (Other)
  Sender: FDA-Public Use
  Company Number: CA-ASTRAZENECA-2011SE07861

PATIENT
  Age: 68 Year
  Sex: Male

DRUGS (4)
  1. SYMBICORT [Suspect]
     Dosage: 800-1200 MCG TWO INHALATIONS TWICE A DAY
     Route: 055
     Dates: start: 20100424
  2. XALATAN [Concomitant]
     Dosage: 1 DROP AT NIGHT
     Route: 047
     Dates: start: 20101115, end: 20110217
  3. SYMBICORT [Suspect]
     Dosage: 800-1200 MCG TWO MORE INHALATIONS AS  REQUIRED
     Route: 055
     Dates: start: 20100424
  4. AZOPT [Concomitant]
     Dosage: 1 DROP TWO TIMES A DAY
     Route: 047
     Dates: start: 20100217

REACTIONS (2)
  - DRUG INEFFECTIVE [None]
  - WHEEZING [None]
